FAERS Safety Report 22205085 (Version 5)
Quarter: 2024Q2

REPORT INFORMATION
  Report Type: Report from Study
  Country: US (occurrence: US)
  Receive Date: 20230413
  Receipt Date: 20240425
  Transmission Date: 20240715
  Serious: Yes (Death, Hospitalization)
  Sender: FDA-Public Use
  Company Number: US-BAUSCH-BL-2023-005883

PATIENT
  Age: 73 Year
  Sex: Female

DRUGS (1)
  1. XIFAXAN [Suspect]
     Active Substance: RIFAXIMIN
     Indication: Hepatic encephalopathy
     Route: 048
     Dates: start: 20210512

REACTIONS (5)
  - Liver disorder [Fatal]
  - Disease complication [Fatal]
  - Cerebrovascular accident [Not Recovered/Not Resolved]
  - Urinary tract infection [Recovering/Resolving]
  - Generalised oedema [Recovering/Resolving]

NARRATIVE: CASE EVENT DATE: 20230312
